FAERS Safety Report 7091338-0 (Version None)
Quarter: 2010Q4

REPORT INFORMATION
  Report Type: 
  Country: None (occurrence: None)
  Receive Date: 20101105
  Receipt Date: 20101105
  Transmission Date: 20110411
  Serious: Yes (Other)
  Sender: FDA-Public Use
  Company Number: None

PATIENT
  Age: 47 Year
  Sex: Female
  Weight: 89 kg

DRUGS (10)
  1. SUTENT [Suspect]
     Indication: BREAST CANCER
     Dosage: 37.5 MG DAILY FOR 4 WEEKS PO
     Route: 048
     Dates: start: 20100830, end: 20100913
  2. SUTENT [Suspect]
     Indication: METASTASES TO CENTRAL NERVOUS SYSTEM
     Dosage: 37.5 MG DAILY FOR 4 WEEKS PO
     Route: 048
     Dates: start: 20100830, end: 20100913
  3. DEXAMETHASONE [Concomitant]
  4. DOCUSATE SODIUM-COLACE [Concomitant]
  5. PEPCID [Concomitant]
  6. KEPPRA [Concomitant]
  7. MULTI-VITAMIN [Concomitant]
  8. CALCIUM + VITAMIN D [Concomitant]
  9. OXYCODONE HCL/ACETAMINOPHEN-PERCOCET [Concomitant]
  10. GLUCOSAM-CHONDRO-HERB 149-HYAL-GLUCOSAMINE CHONDROITIN COMPLEX ADVANCE [Concomitant]

REACTIONS (4)
  - DYSPNOEA EXERTIONAL [None]
  - FATIGUE [None]
  - INTERSTITIAL LUNG DISEASE [None]
  - TACHYCARDIA [None]
